FAERS Safety Report 24182236 (Version 2)
Quarter: 2024Q3

REPORT INFORMATION
  Report Type: Spontaneous
  Country: US (occurrence: US)
  Receive Date: 20240807
  Receipt Date: 20240809
  Transmission Date: 20241016
  Serious: No
  Sender: NOVARTIS
  Company Number: US-002147023-NVSC2024US154971

PATIENT

DRUGS (1)
  1. COSENTYX [Suspect]
     Active Substance: SECUKINUMAB
     Indication: Psoriasis
     Dosage: UNK
     Route: 065

REACTIONS (6)
  - Increased viscosity of upper respiratory secretion [Unknown]
  - Nasal crusting [Unknown]
  - Tenderness [Unknown]
  - Nasal discomfort [Unknown]
  - Product dose omission issue [Unknown]
  - Psoriasis [Unknown]
